FAERS Safety Report 8168175-9 (Version None)
Quarter: 2012Q1

REPORT INFORMATION
  Report Type: 
  Country: None (occurrence: None)
  Receive Date: 20120222
  Receipt Date: 20120213
  Transmission Date: 20120608
  Serious: Yes (Other)
  Sender: FDA-Public Use
  Company Number: AUR-APL-2012-00762

PATIENT
  Age: 53 Year
  Sex: Female
  Weight: 107 kg

DRUGS (8)
  1. METFORMIN HCL [Suspect]
     Indication: DIABETES MELLITUS
     Dosage: 2500 MG, 1 D
     Dates: end: 20111201
  2. QUINAPRIL /HYDROCHLOROTHIAZIDE (GEZOR [Concomitant]
  3. ANTI-GLOBULIN [Concomitant]
  4. TYLENOL WITH CODEINE (PANADEINE CO) [Concomitant]
  5. ACETAMINOPHEN [Concomitant]
  6. SINGULAIR [Concomitant]
  7. ACTOS [Suspect]
     Indication: DIABETES MELLITUS
     Dosage: 45 MG, 1 D
     Dates: end: 20111201
  8. CLARITIN-D (NARINE /01202601/) [Concomitant]

REACTIONS (3)
  - CYSTITIS [None]
  - BLOOD GLUCOSE INCREASED [None]
  - EYE DISORDER [None]
